APPROVED DRUG PRODUCT: MECLIZINE HYDROCHLORIDE
Active Ingredient: MECLIZINE HYDROCHLORIDE
Strength: 12.5MG
Dosage Form/Route: TABLET;ORAL
Application: A088732 | Product #001
Applicant: ANI PHARMACEUTICALS INC
Approved: Dec 11, 1985 | RLD: No | RS: No | Type: DISCN